FAERS Safety Report 9133738 (Version 4)
Quarter: 2013Q3

REPORT INFORMATION
  Report Type: Spontaneous
  Country: US (occurrence: US)
  Receive Date: 20130303
  Receipt Date: 20130723
  Transmission Date: 20140515
  Serious: No
  Sender: FDA-Public Use
  Company Number: US-009507513-1302USA011132

PATIENT
  Age: 64 Year
  Sex: Male
  Weight: 83.9 kg

DRUGS (8)
  1. VICTRELIS [Suspect]
     Indication: CHRONIC HEPATITIS C
     Dosage: 800 MG, TID
     Route: 048
     Dates: start: 20130211
  2. VICTRELIS [Suspect]
     Dosage: 800 MG, TID
     Route: 048
     Dates: start: 20120927
  3. VICTRELIS [Suspect]
     Dosage: 800 MG, TID
     Route: 048
     Dates: start: 20130128
  4. VICTRELIS [Suspect]
     Dosage: 800 MG, TID
     Route: 048
  5. RIBASPHERE [Suspect]
     Indication: CHRONIC HEPATITIS C
     Dosage: 200MG CAPS 84/BLT
     Dates: start: 20130118
  6. PEGASYS [Suspect]
     Indication: CHRONIC HEPATITIS C
     Dosage: PROCLICK 135MCG/0.5ML AUTO INJ 4
     Dates: start: 20130118
  7. TERAZOSIN HYDROCHLORIDE [Concomitant]
  8. LISINOPRIL (+) HYDROCHLOROTHIAZIDE [Concomitant]
     Dosage: 10-12.5MG TABLET

REACTIONS (7)
  - Vitreous floaters [Not Recovered/Not Resolved]
  - Asthenia [Not Recovered/Not Resolved]
  - Fatigue [Not Recovered/Not Resolved]
  - Pruritus [Recovered/Resolved]
  - Palpitations [Unknown]
  - Anaemia [Not Recovered/Not Resolved]
  - Fatigue [Recovering/Resolving]
